FAERS Safety Report 16056226 (Version 1)
Quarter: 2019Q1

REPORT INFORMATION
  Report Type: Spontaneous
  Country: US (occurrence: US)
  Receive Date: 20190311
  Receipt Date: 20190311
  Transmission Date: 20190418
  Serious: No
  Sender: FDA-Public Use
  Company Number: PHEH2019US010054

PATIENT
  Sex: Female

DRUGS (1)
  1. KISQALI [Suspect]
     Active Substance: RIBOCICLIB
     Indication: NEOPLASM MALIGNANT
     Dosage: 600 MG
     Route: 048
     Dates: start: 20170517

REACTIONS (2)
  - Pigmentation disorder [Not Recovered/Not Resolved]
  - Skin depigmentation [Not Recovered/Not Resolved]
